FAERS Safety Report 6516639-3 (Version None)
Quarter: 2009Q4

REPORT INFORMATION
  Report Type: 
  Country: None (occurrence: None)
  Receive Date: 20091223
  Receipt Date: 20091221
  Transmission Date: 20100525
  Serious: Yes (Hospitalization)
  Sender: FDA-Public Use
  Company Number: ZA-WYE-H12749609

PATIENT
  Sex: Male
  Weight: 85.4 kg

DRUGS (4)
  1. TEMSIROLIMUS [Suspect]
     Indication: RENAL CANCER
     Route: 042
     Dates: start: 20091202
  2. CYMBALTA [Concomitant]
     Indication: BIPOLAR DISORDER
     Dates: start: 20080101
  3. SEROQUEL [Concomitant]
     Indication: BIPOLAR DISORDER
     Dates: start: 20080101
  4. GLUCOPHAGE [Concomitant]
     Indication: DIABETES MELLITUS
     Dates: start: 20080801

REACTIONS (1)
  - CHOLECYSTITIS ACUTE [None]
